FAERS Safety Report 7069567-1 (Version None)
Quarter: 2010Q4

REPORT INFORMATION
  Report Type: 
  Country: None (occurrence: None)
  Receive Date: 20101028
  Receipt Date: 20100317
  Transmission Date: 20110411
  Serious: No
  Sender: FDA-Public Use
  Company Number: US-WYE-H14228610

PATIENT
  Sex: Female
  Weight: 72.64 kg

DRUGS (3)
  1. EFFEXOR [Suspect]
     Indication: BIPOLAR DISORDER
     Dosage: UNKNOWN
     Dates: start: 20090101
  2. DEPAKOTE [Concomitant]
  3. SEROQUEL [Concomitant]

REACTIONS (1)
  - DRUG SCREEN FALSE POSITIVE [None]
